FAERS Safety Report 14630279 (Version 1)
Quarter: 2018Q1

REPORT INFORMATION
  Report Type: Spontaneous
  Country: US (occurrence: US)
  Receive Date: 20180313
  Receipt Date: 20180313
  Transmission Date: 20180509
  Serious: Yes (Hospitalization, Other)
  Sender: FDA-Public Use
  Company Number: None

PATIENT
  Age: 19 Year
  Sex: Female
  Weight: 43.09 kg

DRUGS (2)
  1. PROGESTIN [Concomitant]
     Active Substance: PROGESTERONE
  2. KYLEENA [Suspect]
     Active Substance: LEVONORGESTREL
     Dates: start: 20171127

REACTIONS (5)
  - Headache [None]
  - Dyspnoea [None]
  - Tachycardia [None]
  - Fatigue [None]
  - Chest pain [None]

NARRATIVE: CASE EVENT DATE: 20180221
